FAERS Safety Report 9394509 (Version 1)
Quarter: 2013Q3

REPORT INFORMATION
  Report Type: Spontaneous
  Country: AU (occurrence: AU)
  Receive Date: 20130711
  Receipt Date: 20130711
  Transmission Date: 20140515
  Serious: Yes (Other)
  Sender: FDA-Public Use
  Company Number: PHHY2013AU071324

PATIENT
  Age: 65 Year
  Sex: Male

DRUGS (1)
  1. VOLTAREN [Suspect]
     Dosage: UNK UKN, UNK

REACTIONS (24)
  - Benign lung neoplasm [Recovering/Resolving]
  - Rhonchi [Recovering/Resolving]
  - Pulmonary mass [Recovering/Resolving]
  - Rales [Recovering/Resolving]
  - Dyspnoea [Recovering/Resolving]
  - Cardiomegaly [Recovering/Resolving]
  - Wheezing [Recovering/Resolving]
  - Gout [Recovering/Resolving]
  - Gouty tophus [Recovering/Resolving]
  - Pain [Recovering/Resolving]
  - Blood uric acid increased [Recovering/Resolving]
  - Ventricular extrasystoles [Recovering/Resolving]
  - Left ventricular dysfunction [Recovering/Resolving]
  - Electrocardiogram T wave inversion [Recovering/Resolving]
  - Coronary artery disease [Recovering/Resolving]
  - Skin ulcer [Recovering/Resolving]
  - Ejection fraction decreased [Recovering/Resolving]
  - Blood cholesterol increased [Recovering/Resolving]
  - Obesity [Recovering/Resolving]
  - Overweight [Recovering/Resolving]
  - Oedema peripheral [Recovering/Resolving]
  - Liver function test abnormal [Recovering/Resolving]
  - Blood pressure increased [Recovering/Resolving]
  - Weight decreased [Recovering/Resolving]
